FAERS Safety Report 6292587-1 (Version None)
Quarter: 2009Q3

REPORT INFORMATION
  Report Type: 
  Country: None (occurrence: None)
  Receive Date: 20090731
  Receipt Date: 20090727
  Transmission Date: 20100115
  Serious: Yes (Death, Life-Threatening, Hospitalization)
  Sender: FDA-Public Use
  Company Number: KR-ASTRAZENECA-2007AP05581

PATIENT
  Age: 27269 Day
  Sex: Male

DRUGS (20)
  1. IRESSA [Suspect]
     Indication: LUNG ADENOCARCINOMA STAGE III
     Route: 048
     Dates: start: 20070711
  2. THEOPHYLLINE [Concomitant]
     Indication: DYSPNOEA
     Dosage: STARTED } 6 MONTHS PRIOR TO STUDY START
     Route: 048
  3. DOSTEIN [Concomitant]
     Indication: PRODUCTIVE COUGH
     Dosage: STARTED } 6 MONTHS PRIOR TO STUDY START
     Route: 048
  4. AMARYL [Concomitant]
     Indication: DIABETES MELLITUS
     Route: 048
     Dates: end: 20070803
  5. NIFEDIPINE [Concomitant]
     Indication: HYPERTENSION
     Route: 048
     Dates: start: 20070504
  6. ASPIRIN [Concomitant]
     Indication: CEREBRAL ISCHAEMIA
     Route: 048
     Dates: start: 20070323
  7. PLAVIX [Concomitant]
     Indication: CEREBRAL ISCHAEMIA
     Route: 048
     Dates: start: 20070323
  8. GRINEXIN-F [Concomitant]
     Indication: CEREBRAL ISCHAEMIA
     Route: 048
     Dates: start: 20070323, end: 20070803
  9. MUCOSTA [Concomitant]
     Indication: PROPHYLAXIS AGAINST GASTROINTESTINAL ULCER
     Route: 048
     Dates: start: 20070326
  10. AIRFAL [Concomitant]
     Indication: NECK PAIN
     Route: 048
     Dates: start: 20070725
  11. ULTRACET [Concomitant]
     Indication: NECK PAIN
     Route: 048
     Dates: start: 20070725
  12. CARBOPLATIN [Concomitant]
     Indication: CHEMOTHERAPY
     Dosage: 8 CYCLES GIVEN
     Dates: end: 20061002
  13. GEMCITABINE [Concomitant]
     Indication: CHEMOTHERAPY
     Dosage: 8 CYCLES GIVEN
     Dates: end: 20061002
  14. TANAKAN [Concomitant]
     Indication: CEREBRAL ISCHAEMIA
     Route: 048
     Dates: start: 20070804
  15. TRITACE [Concomitant]
     Indication: HYPERTENSION
     Route: 048
     Dates: start: 20070805
  16. LOCERYL [Concomitant]
     Indication: TINEA PEDIS
     Route: 061
     Dates: start: 20070806
  17. BACTROBAN [Concomitant]
     Indication: TINEA PEDIS
     Route: 062
     Dates: start: 20070803
  18. NEURONTIN [Concomitant]
     Indication: CHEST DISCOMFORT
     Route: 048
     Dates: start: 20070814
  19. LORAVOM [Concomitant]
     Indication: CHEST DISCOMFORT
     Route: 048
     Dates: start: 20070814
  20. ARESTAL [Concomitant]
     Indication: DIARRHOEA
     Route: 048
     Dates: start: 20070821

REACTIONS (2)
  - ASTHENIA [None]
  - MULTI-ORGAN FAILURE [None]
